FAERS Safety Report 9038766 (Version 1)
Quarter: 2013Q1

REPORT INFORMATION
  Report Type: Spontaneous
  Country: US (occurrence: None)
  Receive Date: 20130123
  Receipt Date: 20130123
  Transmission Date: 20140127
  Serious: Yes (Other)
  Sender: FDA-Public Use
  Company Number: None

PATIENT
  Age: 44 Year
  Sex: Female
  Weight: 54.43 kg

DRUGS (1)
  1. SUMATRIPTAN 100MG COBALT LABORATORIES [Suspect]
     Indication: MIGRAINE
     Route: 048
     Dates: start: 20120527, end: 20121030

REACTIONS (2)
  - Nausea [None]
  - Vomiting [None]
